FAERS Safety Report 8263027-8 (Version None)
Quarter: 2012Q2

REPORT INFORMATION
  Report Type: 
  Country: None (occurrence: None)
  Receive Date: 20120405
  Receipt Date: 20120402
  Transmission Date: 20120825
  Serious: Yes (Hospitalization)
  Sender: FDA-Public Use
  Company Number: US-B.I. PHARMACEUTICALS,INC./RIDGEFIELD-2012-BP-06148BP

PATIENT
  Sex: Male

DRUGS (3)
  1. RADIATION THERAPY [Concomitant]
     Indication: NEOPLASM MALIGNANT
     Dates: start: 20111201, end: 20120101
  2. PRADAXA [Suspect]
     Indication: ATRIAL FIBRILLATION
     Dosage: 300 MG
     Route: 048
     Dates: start: 20110301, end: 20111201
  3. CHEMOTHERAPY [Concomitant]
     Indication: NEOPLASM MALIGNANT
     Dates: start: 20111201, end: 20120101

REACTIONS (2)
  - PULMONARY EMBOLISM [None]
  - DYSPNOEA [None]
